FAERS Safety Report 6425582-X (Version None)
Quarter: 2009Q4

REPORT INFORMATION
  Report Type: 
  Country: None (occurrence: None)
  Receive Date: 20091103
  Receipt Date: 20091026
  Transmission Date: 20100525
  Serious: Yes (Hospitalization, Other)
  Sender: FDA-Public Use
  Company Number: US-PFIZER INC-001-0981-M0008103

PATIENT
  Sex: Male
  Weight: 87.075 kg

DRUGS (10)
  1. LIPITOR [Suspect]
     Indication: BLOOD CHOLESTEROL INCREASED
     Dosage: 20 MG, 1X/DAY
     Route: 048
     Dates: start: 19991001
  2. LIPITOR [Suspect]
     Indication: CORONARY ARTERY OCCLUSION
     Dosage: 40 MG, 1X/DAY
  3. NIASPAN [Suspect]
     Indication: HIGH DENSITY LIPOPROTEIN
     Dosage: 500 MG, 1X/DAY
     Route: 048
     Dates: start: 20060101
  4. NIASPAN [Suspect]
     Dosage: 1000 MG, 1X/DAY
     Dates: start: 20060101
  5. ACETYLSALICYLIC ACID [Suspect]
     Dosage: 81 MG, 2X/DAY
     Route: 048
  6. METOPROLOL TARTRATE [Concomitant]
     Indication: BLOOD PRESSURE
     Dosage: 50 MG, 2X/DAY
     Route: 048
  7. FINASTERIDE [Concomitant]
  8. VITAMINS [Concomitant]
  9. LOVAZA [Concomitant]
  10. LISINOPRIL [Concomitant]
     Indication: BLOOD PRESSURE
     Dosage: 30 MG, 1X/DAY
     Route: 048

REACTIONS (6)
  - BLOOD BILIRUBIN INCREASED [None]
  - CATHETERISATION CARDIAC [None]
  - HOT FLUSH [None]
  - MACULOPATHY [None]
  - MENIERE'S DISEASE [None]
  - PROTEIN TOTAL INCREASED [None]
